FAERS Safety Report 13364016 (Version 1)
Quarter: 2017Q1

REPORT INFORMATION
  Report Type: Spontaneous
  Country: CA (occurrence: CA)
  Receive Date: 20170323
  Receipt Date: 20170323
  Transmission Date: 20170429
  Serious: Yes (Other)
  Sender: FDA-Public Use
  Company Number: CA-PFIZER INC-2017120389

PATIENT
  Age: 9 Year
  Sex: Female

DRUGS (1)
  1. EPIPEN [Suspect]
     Active Substance: EPINEPHRINE
     Dosage: 0.3 MG OF 1:1000 EPINEPHRINE

REACTIONS (6)
  - Accidental exposure to product by child [Unknown]
  - Injection site paraesthesia [Recovered/Resolved]
  - Injection site pain [Recovered/Resolved]
  - Injection site pallor [Recovered/Resolved]
  - Injection site coldness [Recovered/Resolved]
  - Injection site ischaemia [Recovered/Resolved]
